FAERS Safety Report 5832912-6 (Version None)
Quarter: 2008Q3

REPORT INFORMATION
  Report Type: 
  Country: None (occurrence: None)
  Receive Date: 20080804
  Receipt Date: 20080711
  Transmission Date: 20090109
  Serious: No
  Sender: FDA-Public Use
  Company Number: US-BOEHRINGER INGELHEIM GMBH, GERMANY-2008-BP-10933BP

PATIENT
  Age: 49 Year
  Sex: Female
  Weight: 58 kg

DRUGS (15)
  1. MIRAPEX [Suspect]
     Indication: RESTLESS LEGS SYNDROME
     Dates: end: 20080616
  2. REMERON [Concomitant]
  3. SEROQUEL [Concomitant]
  4. PREMARIN [Concomitant]
  5. FOSAMAX [Concomitant]
  6. LYRICA [Concomitant]
  7. DURAGESIC-100 [Concomitant]
  8. VOLTEN [Concomitant]
  9. NORFLOSE [Concomitant]
  10. NASONEX [Concomitant]
  11. LOPRESSOR [Concomitant]
  12. PRILOSEC [Concomitant]
  13. BENTYL [Concomitant]
  14. CHOLEST [Concomitant]
  15. ALBUTEROL [Concomitant]

REACTIONS (2)
  - NAUSEA [None]
  - VOMITING [None]
